FAERS Safety Report 14298491 (Version 2)
Quarter: 2018Q1

REPORT INFORMATION
  Report Type: Report from Study
  Country: US (occurrence: US)
  Receive Date: 20171218
  Receipt Date: 20180307
  Transmission Date: 20180509
  Serious: Yes (Hospitalization, Other)
  Sender: FDA-Public Use
  Company Number: US-ACTELION-A-US2017-163989

PATIENT
  Age: 77 Year
  Sex: Female

DRUGS (16)
  1. OPSUMIT [Suspect]
     Active Substance: MACITENTAN
     Indication: PULMONARY ARTERIAL HYPERTENSION
     Dosage: UNK
     Route: 048
  2. CRESTOR [Concomitant]
     Active Substance: ROSUVASTATIN CALCIUM
  3. METFORMIN HCL [Concomitant]
     Active Substance: METFORMIN HYDROCHLORIDE
  4. GABAPENTIN. [Concomitant]
     Active Substance: GABAPENTIN
  5. HYDRALAZINE HCL [Concomitant]
     Active Substance: HYDRALAZINE HYDROCHLORIDE
  6. OPSUMIT [Suspect]
     Active Substance: MACITENTAN
     Dosage: 10 MG, UNK
     Route: 048
  7. CLOPIDOGREL [Concomitant]
     Active Substance: CLOPIDOGREL BISULFATE
  8. LORAZEPAM. [Concomitant]
     Active Substance: LORAZEPAM
  9. TRAMADOL HCL [Concomitant]
     Active Substance: TRAMADOL HYDROCHLORIDE
  10. MECLIZINE HCL [Concomitant]
     Active Substance: MECLIZINE HYDROCHLORIDE
  11. PROAIR HFA [Concomitant]
     Active Substance: ALBUTEROL SULFATE
  12. ALENDRONATE [Concomitant]
     Active Substance: ALENDRONATE SODIUM
  13. FLUOXETINE HCL [Concomitant]
     Active Substance: FLUOXETINE HYDROCHLORIDE
  14. CARVEDILOL. [Concomitant]
     Active Substance: CARVEDILOL
  15. OMEPRAZOLE. [Concomitant]
     Active Substance: OMEPRAZOLE
  16. ZOLPIDEM TARTRATE. [Concomitant]
     Active Substance: ZOLPIDEM TARTRATE

REACTIONS (9)
  - Vomiting [Unknown]
  - Malaise [Unknown]
  - Diabetes mellitus [Unknown]
  - Hypertension [Unknown]
  - Feeling abnormal [Unknown]
  - Leukaemia [Unknown]
  - Blood glucose abnormal [Unknown]
  - Chronic obstructive pulmonary disease [Unknown]
  - Dizziness [Unknown]

NARRATIVE: CASE EVENT DATE: 201712
